FAERS Safety Report 5193136-1 (Version None)
Quarter: 2006Q4

REPORT INFORMATION
  Report Type: 
  Country: None (occurrence: None)
  Receive Date: 20061228
  Receipt Date: 20060522
  Transmission Date: 20070319
  Serious: No
  Sender: FDA-Public Use
  Company Number: US-GLAXOSMITHKLINE-A0606526A

PATIENT
  Age: 77 Year
  Sex: Male

DRUGS (5)
  1. AVODART [Suspect]
     Indication: BENIGN PROSTATIC HYPERPLASIA
     Dosage: .5MG PER DAY
     Route: 048
     Dates: start: 20051101
  2. VERAPAMIL [Concomitant]
  3. HYTRIN [Concomitant]
  4. AVAPRO [Concomitant]
  5. AVALIDE [Concomitant]

REACTIONS (2)
  - MUSCLE TIGHTNESS [None]
  - PAIN IN EXTREMITY [None]
